FAERS Safety Report 20977989 (Version 1)
Quarter: 2022Q2

REPORT INFORMATION
  Report Type: Spontaneous
  Country: US (occurrence: US)
  Receive Date: 20220618
  Receipt Date: 20220618
  Transmission Date: 20220721
  Serious: No
  Sender: FDA-Public Use
  Company Number: US-BRISTOL-MYERS SQUIBB COMPANY-2022-052788

PATIENT
  Age: 73 Year
  Sex: Male

DRUGS (1)
  1. REVLIMID [Suspect]
     Active Substance: LENALIDOMIDE
     Indication: Non-Hodgkin^s lymphoma
     Dosage: DOSE : UNAVAILABLE;     FREQ : 10MG DAILY
     Route: 048
     Dates: start: 20220214

REACTIONS (3)
  - Accidental overdose [Unknown]
  - Insomnia [Unknown]
  - Intentional product use issue [Unknown]
